FAERS Safety Report 23654644 (Version 1)
Quarter: 2024Q1

REPORT INFORMATION
  Report Type: Spontaneous
  Country: CZ (occurrence: CZ)
  Receive Date: 20240320
  Receipt Date: 20240320
  Transmission Date: 20240410
  Serious: Yes (Hospitalization)
  Sender: FDA-Public Use
  Company Number: CZ-MYLANLABS-2024M1025357

PATIENT
  Age: 42 Year
  Sex: Female

DRUGS (9)
  1. VORICONAZOLE [Interacting]
     Active Substance: VORICONAZOLE
     Indication: Bronchopulmonary aspergillosis
     Dosage: 600 MILLIGRAM, QD
     Route: 042
  2. LEVOFLOXACIN [Interacting]
     Active Substance: LEVOFLOXACIN
     Indication: Pneumonia
     Dosage: UNK
     Route: 065
  3. LINEZOLID [Interacting]
     Active Substance: LINEZOLID
     Indication: Sepsis
     Dosage: UNK
     Route: 065
  4. MEROPENEM [Interacting]
     Active Substance: MEROPENEM
     Indication: Pneumonia
     Dosage: UNK
     Route: 065
  5. AVIBACTAM SODIUM\CEFTAZIDIME [Interacting]
     Active Substance: AVIBACTAM SODIUM\CEFTAZIDIME
     Indication: Sepsis
     Dosage: UNK
     Route: 065
  6. MOXIFLOXACIN [Interacting]
     Active Substance: MOXIFLOXACIN
     Indication: Sepsis
     Dosage: UNK
     Route: 065
  7. METRONIDAZOLE [Interacting]
     Active Substance: METRONIDAZOLE
     Indication: Sepsis
     Dosage: UNK
     Route: 065
  8. KETAMINE [Interacting]
     Active Substance: KETAMINE
     Indication: Product used for unknown indication
     Dosage: UNK
     Route: 065
  9. NOREPINEPHRINE [Suspect]
     Active Substance: NOREPINEPHRINE\NOREPINEPHRINE BITARTRATE
     Indication: Cardiovascular disorder
     Dosage: 0.47 MICROGRAM/KILOGRAM (0.47 ?,G/ KG/MIN)
     Route: 065

REACTIONS (3)
  - Drug ineffective [Recovered/Resolved]
  - Drug interaction [Recovered/Resolved]
  - Drug level below therapeutic [Recovered/Resolved]
